FAERS Safety Report 17911716 (Version 1)
Quarter: 2020Q2

REPORT INFORMATION
  Report Type: Spontaneous
  Country: US (occurrence: US)
  Receive Date: 20200618
  Receipt Date: 20200618
  Transmission Date: 20200714
  Serious: No
  Sender: FDA-Public Use
  Company Number: US-PFIZER INC-2020236419

PATIENT
  Age: 67 Year
  Sex: Female

DRUGS (3)
  1. SULFUR. [Suspect]
     Active Substance: SULFUR
     Dosage: UNK(100% POWDER)
  2. ERYTHROMYCIN. [Suspect]
     Active Substance: ERYTHROMYCIN
     Dosage: 250 MG
  3. PRILOSEC [Suspect]
     Active Substance: OMEPRAZOLE MAGNESIUM
     Dosage: 10 MG

REACTIONS (1)
  - Drug hypersensitivity [Unknown]
